FAERS Safety Report 17225165 (Version 4)
Quarter: 2020Q3

REPORT INFORMATION
  Report Type: Report from Study
  Country: None (occurrence: US)
  Receive Date: 20200102
  Receipt Date: 20200909
  Transmission Date: 20201102
  Serious: Yes (Other)
  Sender: FDA-Public Use
  Company Number: US-GLAXOSMITHKLINE-US2019TSO237747

PATIENT
  Sex: Female

DRUGS (3)
  1. NIRAPARIB [Suspect]
     Active Substance: NIRAPARIB
     Dosage: 100 MG, QD
  2. NIRAPARIB [Suspect]
     Active Substance: NIRAPARIB
     Dosage: 100 MG, QD
  3. NIRAPARIB [Suspect]
     Active Substance: NIRAPARIB
     Indication: OVARIAN CANCER
     Dosage: UNK
     Route: 065
     Dates: start: 20190921, end: 20191127

REACTIONS (9)
  - Off label use [Unknown]
  - Cardiac disorder [Unknown]
  - Diarrhoea [Unknown]
  - Pulmonary hypertension [Unknown]
  - Echocardiogram abnormal [Unknown]
  - Diverticulitis [Unknown]
  - Cardiac stress test abnormal [Unknown]
  - Electrocardiogram abnormal [Unknown]
  - Dyspnoea [Unknown]
